FAERS Safety Report 4433444-2 (Version None)
Quarter: 2004Q3

REPORT INFORMATION
  Report Type: 
  Country: None (occurrence: None)
  Receive Date: 20040826
  Receipt Date: 20040819
  Transmission Date: 20050211
  Serious: Yes (Hospitalization, Other)
  Sender: FDA-Public Use
  Company Number: PHHO2004JP11720

PATIENT
  Age: 84 Year
  Sex: Female

DRUGS (5)
  1. DIOVAN [Suspect]
     Dosage: 40 MG, QD
     Dates: start: 20030602
  2. CEROCRAL [Concomitant]
     Indication: CEREBRAL INFARCTION
  3. BUFERIN [Concomitant]
     Indication: CEREBRAL INFARCTION
  4. GASTER [Concomitant]
     Indication: GASTRIC ULCER
  5. MUCOSTA [Concomitant]
     Indication: GASTRIC ULCER

REACTIONS (2)
  - CEREBRAL INFARCTION [None]
  - HEMIPARESIS [None]
